FAERS Safety Report 26069343 (Version 1)
Quarter: 2025Q4

REPORT INFORMATION
  Report Type: Spontaneous
  Country: EU (occurrence: EU)
  Receive Date: 20251120
  Receipt Date: 20251120
  Transmission Date: 20260117
  Serious: Yes (Hospitalization, Other)
  Sender: AUROBINDO
  Company Number: EU-AFSSAPS-BX2025001667

PATIENT
  Age: 61 Year
  Sex: Female
  Weight: 68 kg

DRUGS (3)
  1. CARBOPLATIN [Suspect]
     Active Substance: CARBOPLATIN
     Indication: Endometrial cancer
     Dosage: UNK, EVERY 3 WEEK
     Dates: start: 20250227, end: 20250227
  2. PACLITAXEL [Suspect]
     Active Substance: PACLITAXEL
     Indication: Endometrial cancer
     Dosage: 175 MILLIGRAM/SQ. METER, EVERY 3 WEEK
     Dates: start: 20250227, end: 20250227
  3. JEMPERLI [Suspect]
     Active Substance: DOSTARLIMAB-GXLY
     Indication: Endometrial cancer
     Dosage: UNK
     Dates: start: 20250227, end: 20250227

REACTIONS (2)
  - Ischaemic stroke [Recovered/Resolved]
  - Stress cardiomyopathy [Recovered/Resolved]

NARRATIVE: CASE EVENT DATE: 20250314
